FAERS Safety Report 12741228 (Version 1)
Quarter: 2016Q3

REPORT INFORMATION
  Report Type: Spontaneous
  Country: US (occurrence: US)
  Receive Date: 20160914
  Receipt Date: 20160914
  Transmission Date: 20161109
  Serious: No
  Sender: FDA-Public Use
  Company Number: US-BAYER-2016-178516

PATIENT
  Age: 72 Year
  Sex: Female
  Weight: 90.7 kg

DRUGS (1)
  1. MIRALAX [Suspect]
     Active Substance: POLYETHYLENE GLYCOL 3350
     Indication: COLONOSCOPY
     Dosage: 238 MG, ONCE,  SHE IS TO USE 238 G DIVIDED INTO 2 32 OZ BOTTLES OF GATORATED
     Route: 048
     Dates: start: 20160913

REACTIONS (1)
  - Circumstance or information capable of leading to medication error [None]
